FAERS Safety Report 15894884 (Version 2)
Quarter: 2019Q1

REPORT INFORMATION
  Report Type: Report from Study
  Country: CN (occurrence: CN)
  Receive Date: 20190131
  Receipt Date: 20190318
  Transmission Date: 20190417
  Serious: Yes (Death)
  Sender: FDA-Public Use
  Company Number: CN-ROCHE-1723460

PATIENT
  Sex: Female

DRUGS (3)
  1. HERCEPTIN [Suspect]
     Active Substance: TRASTUZUMAB
     Indication: HER-2 POSITIVE BREAST CANCER
     Dosage: FIRST DOSE 440MG, MAINTAIN DOSE 440MG
     Route: 041
     Dates: start: 20130206, end: 2016
  2. CISPLATIN. [Concomitant]
     Active Substance: CISPLATIN
     Indication: HER-2 POSITIVE BREAST CANCER
  3. PEMETREXED. [Concomitant]
     Active Substance: PEMETREXED
     Indication: HER-2 POSITIVE BREAST CANCER

REACTIONS (2)
  - Nausea [Unknown]
  - Vomiting [Unknown]
